FAERS Safety Report 5501248-5 (Version None)
Quarter: 2007Q4

REPORT INFORMATION
  Report Type: 
  Country: None (occurrence: None)
  Receive Date: 20071026
  Receipt Date: 20071022
  Transmission Date: 20080405
  Serious: Yes (Other)
  Sender: FDA-Public Use
  Company Number: 2007333620

PATIENT
  Age: 25 Year
  Sex: Female
  Weight: 63.5036 kg

DRUGS (2)
  1. LISTERINE WHITENING PRE-BRUSH RINSE (NO ACTIVE INGREDIENT) [Suspect]
     Indication: DENTAL DISORDER PROPHYLAXIS
     Dosage: PKG DIRECTIONS 1 TIME PER DAY, ORAL
     Route: 048
     Dates: start: 20070801, end: 20071008
  2. ASCORBIC ACID [Concomitant]

REACTIONS (2)
  - GINGIVAL RECESSION [None]
  - LOOSE TOOTH [None]
